FAERS Safety Report 6173028-1 (Version None)
Quarter: 2009Q2

REPORT INFORMATION
  Report Type: 
  Country: None (occurrence: None)
  Receive Date: 20090428
  Receipt Date: 20031027
  Transmission Date: 20091009
  Serious: Yes (Life-Threatening, Hospitalization)
  Sender: FDA-Public Use
  Company Number: 005831

PATIENT
  Age: 3 Year
  Sex: Male
  Weight: 13.7 kg

DRUGS (13)
  1. BUSULFEX [Suspect]
     Indication: BONE MARROW TRANSPLANT
     Dosage: 64.8 MG, QD INTRAVENOUS
     Route: 042
     Dates: start: 20021022, end: 20061026
  2. MEPHALAN(MELPHALAN)INJECTION [Concomitant]
     Indication: BONE MARROW TRANSPLANT
     Dosage: 140 MG/M2, QD,  INTRAVENOUS
     Route: 042
     Dates: start: 20021027, end: 20021027
  3. TIENAM SWE (CILASTATIN, IMIPENEM) [Concomitant]
  4. AMIKIN [Concomitant]
  5. COLIMYCINE (COLISTIN MESILATE SODIUM) [Concomitant]
  6. RIVOTRIL NOR (CLONAZEPAM) [Concomitant]
  7. ZOFRAN [Concomitant]
  8. URSODIOL [Concomitant]
  9. CEFTAZIDIME PENTAHYDRATE [Concomitant]
  10. BACTRIM UNK (SULFAMETHOXAZOLE, TRIMETHOPRIM) [Concomitant]
  11. RANIPLEX (RANITIDINE) [Concomitant]
  12. TARGOCID [Concomitant]
  13. PLITICAN (ALIZAPRIDE HYDROCHLORIDE) [Concomitant]

REACTIONS (11)
  - ABDOMINAL PAIN [None]
  - GRANULOCYTOPENIA [None]
  - HAEMOGLOBIN DECREASED [None]
  - HEPATOMEGALY [None]
  - PLATELET COUNT DECREASED [None]
  - PLEURAL EFFUSION [None]
  - PULMONARY ALVEOLAR HAEMORRHAGE [None]
  - PYREXIA [None]
  - RESPIRATORY DISTRESS [None]
  - VENOOCCLUSIVE LIVER DISEASE [None]
  - WEIGHT INCREASED [None]
